FAERS Safety Report 22254859 (Version 6)
Quarter: 2024Q1

REPORT INFORMATION
  Report Type: Report from Study
  Country: US (occurrence: US)
  Receive Date: 20230426
  Receipt Date: 20240129
  Transmission Date: 20240409
  Serious: No
  Sender: FDA-Public Use
  Company Number: US-002147023-NVSC2023US090819

PATIENT
  Sex: Male

DRUGS (1)
  1. KESIMPTA [Suspect]
     Active Substance: OFATUMUMAB
     Indication: Relapsing multiple sclerosis
     Dosage: 20 MG, QW
     Route: 058
     Dates: start: 20230406

REACTIONS (5)
  - Hypoaesthesia [Unknown]
  - Tooth abscess [Unknown]
  - Dysstasia [Unknown]
  - Paraesthesia [Unknown]
  - Heart rate increased [Unknown]
